FAERS Safety Report 19437613 (Version 2)
Quarter: 2021Q4

REPORT INFORMATION
  Report Type: Spontaneous
  Country: JP (occurrence: JP)
  Receive Date: 20210619
  Receipt Date: 20211213
  Transmission Date: 20220303
  Serious: Yes (Hospitalization, Other)
  Sender: FDA-Public Use
  Company Number: JP-CHUGAI-2021002872AA

PATIENT
  Age: 8 Decade
  Sex: Male

DRUGS (2)
  1. TECENTRIQ [Suspect]
     Active Substance: ATEZOLIZUMAB
     Indication: Hepatocellular carcinoma
     Route: 041
  2. AVASTIN [Suspect]
     Active Substance: BEVACIZUMAB
     Indication: Hepatocellular carcinoma
     Route: 041

REACTIONS (2)
  - Bacteraemia [Recovering/Resolving]
  - Skin disorder [Recovering/Resolving]

NARRATIVE: CASE EVENT DATE: 20210101
